FAERS Safety Report 10897702 (Version 1)
Quarter: 2015Q1

REPORT INFORMATION
  Report Type: Spontaneous
  Country: US (occurrence: None)
  Receive Date: 20150302
  Receipt Date: 20150302
  Transmission Date: 20150721
  Serious: Yes (Hospitalization)
  Sender: FDA-Public Use
  Company Number: None

PATIENT
  Age: 72 Year
  Sex: Male
  Weight: 102.06 kg

DRUGS (17)
  1. FUROSEMIDE. [Concomitant]
     Active Substance: FUROSEMIDE
  2. ASCORBIC ACID. [Concomitant]
     Active Substance: ASCORBIC ACID
  3. AMLODIPINE [Concomitant]
     Active Substance: AMLODIPINE BESYLATE
  4. FERROUS SULFATE [Concomitant]
     Active Substance: FERROUS SULFATE\FERROUS SULFATE, DRIED
  5. ALBUMIN [Concomitant]
     Active Substance: ALBUMIN (HUMAN)
  6. OMEPRAZOLE. [Concomitant]
     Active Substance: OMEPRAZOLE
  7. ATORVASTATIN [Concomitant]
     Active Substance: ATORVASTATIN
  8. LANTUS [Concomitant]
     Active Substance: INSULIN GLARGINE
  9. CLOPIDOGREL [Concomitant]
     Active Substance: CLOPIDOGREL BISULFATE
  10. ASPIRIN. [Concomitant]
     Active Substance: ASPIRIN
  11. NITGLYCERIN [Concomitant]
  12. WARFARIN [Concomitant]
     Active Substance: WARFARIN
  13. LOSARTIN [Concomitant]
     Active Substance: LOSARTAN
  14. NOVOLOG [Concomitant]
     Active Substance: INSULIN ASPART
  15. METOPROLOL [Concomitant]
     Active Substance: METOPROLOL
  16. CPAP [Concomitant]
     Active Substance: DEVICE
  17. RANEXA [Suspect]
     Active Substance: RANOLAZINE
     Indication: ANGINA PECTORIS
     Dosage: 1 TABLET TWICE A DAY, TWICE DAILY, TAKEN BY MOUTH
     Route: 048
     Dates: start: 20141215, end: 20150120

REACTIONS (1)
  - Renal failure [None]

NARRATIVE: CASE EVENT DATE: 20150105
